FAERS Safety Report 11691089 (Version 1)
Quarter: 2015Q4

REPORT INFORMATION
  Report Type: Spontaneous
  Country: None (occurrence: GB)
  Receive Date: 20151102
  Receipt Date: 20151102
  Transmission Date: 20160304
  Serious: Yes (Other)
  Sender: FDA-Public Use
  Company Number: GB-MEDAC PHARMA, INC.-1043640

PATIENT
  Sex: Female

DRUGS (1)
  1. METOJECT PEN [Suspect]
     Active Substance: METHOTREXATE

REACTIONS (1)
  - Neoplasm malignant [Unknown]
